FAERS Safety Report 19046987 (Version 7)
Quarter: 2021Q3

REPORT INFORMATION
  Report Type: Report from Study
  Country: BR (occurrence: BR)
  Receive Date: 20210323
  Receipt Date: 20210824
  Transmission Date: 20211014
  Serious: Yes (Other)
  Sender: FDA-Public Use
  Company Number: NVSC2021BR009686

PATIENT
  Age: 66 Year
  Sex: Female

DRUGS (21)
  1. KISQALI [Suspect]
     Active Substance: RIBOCICLIB
     Indication: BREAST CANCER
     Dosage: UNK
     Route: 065
     Dates: start: 20210101
  2. TAMOXIFEN [Concomitant]
     Active Substance: TAMOXIFEN
     Indication: AROMATASE INHIBITION THERAPY
     Dosage: UNK
     Route: 065
  3. FULVESTRANT. [Suspect]
     Active Substance: FULVESTRANT
     Indication: PRODUCT USED FOR UNKNOWN INDICATION
     Dosage: UNK (TEVA LABORATORY)
     Route: 065
  4. KISQALI [Suspect]
     Active Substance: RIBOCICLIB
     Dosage: 3 DF, QD
     Route: 065
     Dates: start: 20210104
  5. FULVESTRANT. [Suspect]
     Active Substance: FULVESTRANT
     Dosage: UNK (ASTRAZENECA LABORATORY)
     Route: 065
  6. EXEMESTANE. [Concomitant]
     Active Substance: EXEMESTANE
     Indication: AROMATASE INHIBITION THERAPY
     Dosage: UNK (STOOPED AFTER 3 MONTHS OF START DATE)
     Route: 065
     Dates: start: 201808
  7. FASLODEX [Concomitant]
     Active Substance: FULVESTRANT
     Indication: BREAST NEOPLASM
     Dosage: UNK
     Route: 065
     Dates: start: 2019
  8. ESTROGEN [Concomitant]
     Active Substance: ESTROGENS
     Indication: PRODUCT USED FOR UNKNOWN INDICATION
     Dosage: UNK
     Route: 065
  9. KISQALI [Suspect]
     Active Substance: RIBOCICLIB
     Dosage: 3 DF, QD
     Route: 065
     Dates: start: 202101
  10. FULVESTRANT. [Suspect]
     Active Substance: FULVESTRANT
     Indication: AROMATASE INHIBITION THERAPY
  11. ZOMETA [Suspect]
     Active Substance: ZOLEDRONIC ACID
     Indication: FRACTURE
     Dosage: UNK (NEXT TO START USING KISQALI)
     Route: 065
  12. FULVESTRANT. [Suspect]
     Active Substance: FULVESTRANT
     Indication: METASTASES TO BONE
     Dosage: UNK, 28D
     Route: 065
     Dates: start: 201901
  13. ANASTROZOLE. [Concomitant]
     Active Substance: ANASTROZOLE
     Indication: AROMATASE INHIBITION THERAPY
     Dosage: UNK
     Route: 065
  14. VAGIDRAT [Concomitant]
     Indication: VAGINAL DISORDER
  15. FLU VACCINE VII [Concomitant]
     Active Substance: INFLUENZA VIRUS VACCINE
     Indication: PRODUCT USED FOR UNKNOWN INDICATION
     Dosage: UNK
     Route: 065
     Dates: start: 2020
  16. VAGIDRAT [Concomitant]
     Indication: VULVOVAGINAL DRYNESS
     Dosage: UNK
     Route: 065
  17. KISQALI [Suspect]
     Active Substance: RIBOCICLIB
     Dosage: 3 DF, QD (7 DAYS BREAK)
     Route: 065
     Dates: start: 20210104, end: 20210410
  18. KISQALI [Suspect]
     Active Substance: RIBOCICLIB
     Dosage: 3 DF, QD (7 DAYS BREAK)
     Route: 065
  19. KISQALI [Suspect]
     Active Substance: RIBOCICLIB
     Dosage: 3 DF, QD
     Route: 065
  20. KISQALI [Suspect]
     Active Substance: RIBOCICLIB
     Dosage: 3 DF, QD
     Route: 065
  21. FULVESTRANT. [Suspect]
     Active Substance: FULVESTRANT
     Indication: BREAST NEOPLASM
     Dosage: UNK
     Route: 065

REACTIONS (112)
  - Metastasis [Unknown]
  - Breast cancer [Not Recovered/Not Resolved]
  - Skin laceration [Not Recovered/Not Resolved]
  - Feeling cold [Unknown]
  - Drug hypersensitivity [Unknown]
  - Pruritus [Not Recovered/Not Resolved]
  - Swelling of eyelid [Unknown]
  - Sinusitis [Unknown]
  - Rhinitis [Recovering/Resolving]
  - Vein disorder [Recovered/Resolved]
  - Ocular hyperaemia [Unknown]
  - Orgasmic sensation decreased [Unknown]
  - Tumour marker increased [Unknown]
  - Head injury [Not Recovered/Not Resolved]
  - Injury [Not Recovered/Not Resolved]
  - Skin discolouration [Recovered/Resolved]
  - Mediastinal disorder [Recovering/Resolving]
  - Nervousness [Unknown]
  - Dry skin [Recovered/Resolved]
  - Neutrophil count decreased [Unknown]
  - White blood cell count decreased [Not Recovered/Not Resolved]
  - Dry mouth [Unknown]
  - Headache [Recovering/Resolving]
  - Dry skin [Unknown]
  - Malignant neoplasm progression [Not Recovered/Not Resolved]
  - Skin fissures [Recovering/Resolving]
  - Skin exfoliation [Recovering/Resolving]
  - Oral herpes [Unknown]
  - Trichorrhexis [Unknown]
  - Gastrointestinal disorder [Not Recovered/Not Resolved]
  - Swelling [Unknown]
  - Malaise [Unknown]
  - Haematoma [Recovering/Resolving]
  - Anaemia [Not Recovered/Not Resolved]
  - Urinary tract infection [Recovered/Resolved]
  - Pyrexia [Unknown]
  - Gait disturbance [Unknown]
  - Haemangioma rupture [Not Recovered/Not Resolved]
  - Vulvovaginal burning sensation [Recovered/Resolved]
  - White blood cell count decreased [Recovered/Resolved]
  - Movement disorder [Not Recovered/Not Resolved]
  - Eye discharge [Unknown]
  - Head injury [Recovered/Resolved]
  - Haemorrhoids [Unknown]
  - Lymphadenopathy [Unknown]
  - Limb discomfort [Not Recovered/Not Resolved]
  - Contusion [Recovered/Resolved]
  - Skin burning sensation [Recovering/Resolving]
  - Breast injury [Recovering/Resolving]
  - Tumour marker decreased [Recovering/Resolving]
  - Pruritus [Recovered/Resolved]
  - Paraesthesia [Unknown]
  - Hepatic lesion [Unknown]
  - Peripheral swelling [Recovering/Resolving]
  - Bone lesion [Recovering/Resolving]
  - Application site pain [Unknown]
  - Application site bruise [Unknown]
  - Application site erythema [Unknown]
  - Lip dry [Unknown]
  - Bone neoplasm [Recovered/Resolved]
  - Vulvovaginal discomfort [Not Recovered/Not Resolved]
  - Dry skin [Not Recovered/Not Resolved]
  - Hypersensitivity [Not Recovered/Not Resolved]
  - Pigmentation disorder [Unknown]
  - Eye irritation [Unknown]
  - Frostbite [Unknown]
  - Hair texture abnormal [Unknown]
  - Gastric disorder [Unknown]
  - Visual impairment [Unknown]
  - Pain in extremity [Recovering/Resolving]
  - Skin oedema [Unknown]
  - Vulvovaginal dryness [Not Recovered/Not Resolved]
  - Nasal dryness [Not Recovered/Not Resolved]
  - Pain [Recovered/Resolved]
  - Folliculitis [Recovered/Resolved]
  - Nasal congestion [Unknown]
  - Skin atrophy [Unknown]
  - Oestrogen deficiency [Not Recovered/Not Resolved]
  - Bone pain [Unknown]
  - Muscular weakness [Unknown]
  - Hyperaesthesia [Unknown]
  - Headache [Recovered/Resolved]
  - Application site swelling [Recovering/Resolving]
  - Decreased immune responsiveness [Unknown]
  - Purpura [Unknown]
  - Decreased immune responsiveness [Recovered/Resolved]
  - Metastases to spine [Not Recovered/Not Resolved]
  - Skin disorder [Unknown]
  - Eye swelling [Unknown]
  - Nasal discomfort [Unknown]
  - Eyelid disorder [Unknown]
  - Hernia [Not Recovered/Not Resolved]
  - Nasal pruritus [Unknown]
  - Carbohydrate antigen 15-3 increased [Unknown]
  - Dry eye [Not Recovered/Not Resolved]
  - Fatigue [Unknown]
  - Constipation [Unknown]
  - Aphthous ulcer [Unknown]
  - Contusion [Unknown]
  - Rash macular [Unknown]
  - Metastases to bone [Unknown]
  - Epistaxis [Recovering/Resolving]
  - Dry throat [Not Recovered/Not Resolved]
  - Fear of falling [Not Recovered/Not Resolved]
  - Gait disturbance [Recovered/Resolved]
  - Dyspnoea [Unknown]
  - Chills [Not Recovered/Not Resolved]
  - Pain of skin [Unknown]
  - Nasal disorder [Not Recovered/Not Resolved]
  - Stress [Unknown]
  - Abdominal discomfort [Not Recovered/Not Resolved]
  - Alopecia [Not Recovered/Not Resolved]

NARRATIVE: CASE EVENT DATE: 2016
